FAERS Safety Report 7997699-X (Version None)
Quarter: 2011Q4

REPORT INFORMATION
  Report Type: 
  Country: None (occurrence: None)
  Receive Date: 20111221
  Receipt Date: 20111216
  Transmission Date: 20120403
  Serious: Yes (Hospitalization)
  Sender: FDA-Public Use
  Company Number: US-ROCHE-1023033

PATIENT
  Sex: Female

DRUGS (3)
  1. PEGINTERFERON ALFA-2A [Suspect]
     Indication: HEPATITIS C
     Dates: start: 20111021
  2. COPEGUS [Suspect]
     Indication: HEPATITIS C
     Dates: start: 20111021
  3. BOCEPREVIR [Suspect]
     Indication: HEPATITIS C
     Dates: start: 20111021

REACTIONS (7)
  - VOMITING [None]
  - DIZZINESS [None]
  - DYSPNOEA [None]
  - RED BLOOD CELL COUNT DECREASED [None]
  - NAUSEA [None]
  - PALLOR [None]
  - WHITE BLOOD CELL COUNT DECREASED [None]
